FAERS Safety Report 4455556-X (Version None)
Quarter: 2004Q3

REPORT INFORMATION
  Report Type: 
  Country: None (occurrence: None)
  Receive Date: 20040917
  Receipt Date: 20040907
  Transmission Date: 20050211
  Serious: Yes (Life-Threatening)
  Sender: FDA-Public Use
  Company Number: 04H-163-0272721-00

PATIENT
  Age: 79 Year
  Sex: Female
  Weight: 73 kg

DRUGS (8)
  1. BUPIVACAINE HCL INJECTION (BUPIVACAINE HYDROCHLORIDE) (BUPIBVACAINE HY [Suspect]
     Indication: LOCAL ANAESTHESIA
     Dosage: 10 MG, ONCE, EPIDURAL
     Route: 008
  2. ETOMIDATE [Suspect]
     Indication: GENERAL ANAESTHESIA
     Dosage: 15 MG
  3. SUCCINYLCHOLINE CHLORIDE [Suspect]
     Indication: GENERAL ANAESTHESIA
     Dosage: 100 MG
  4. ISOFLURANE [Suspect]
     Indication: ANAESTHESIA
  5. NITROUS OXIDE [Suspect]
     Indication: ANAESTHESIA
  6. TRANYLCYPROMINE SULFATE [Suspect]
     Indication: DEPRESSION
     Dosage: 10 MG, 4 TIMES A DAY, PER ORAL
     Route: 048
  7. HYDROCORTISONE [Concomitant]
  8. OXYGEN [Concomitant]

REACTIONS (5)
  - ANAESTHETIC COMPLICATION [None]
  - BLOOD PRESSURE DECREASED [None]
  - CIRCULATORY COLLAPSE [None]
  - DRUG INTERACTION [None]
  - HYPOVOLAEMIA [None]
